FAERS Safety Report 7000753-2 (Version None)
Quarter: 2010Q3

REPORT INFORMATION
  Report Type: 
  Country: None (occurrence: None)
  Receive Date: 20100920
  Receipt Date: 20100301
  Transmission Date: 20110219
  Serious: Yes (Other)
  Sender: FDA-Public Use
  Company Number: US-ASTRAZENECA-2009UW20769

PATIENT
  Sex: Female

DRUGS (5)
  1. SEROQUEL [Suspect]
     Route: 048
     Dates: start: 20080303
  2. ALPRAZOLAM [Concomitant]
     Dates: start: 20080303
  3. ESTRADIOL [Concomitant]
     Dates: start: 20080308
  4. CITALOPRAM HYDROBROMIDE [Concomitant]
     Dates: start: 20080325
  5. LEVOTHYROXINE [Concomitant]
     Dosage: 50 MCG
     Dates: start: 20080403

REACTIONS (3)
  - DIABETES MELLITUS [None]
  - KETOACIDOSIS [None]
  - PANCREATITIS [None]
